FAERS Safety Report 15778679 (Version 2)
Quarter: 2019Q1

REPORT INFORMATION
  Report Type: Spontaneous
  Country: US (occurrence: US)
  Receive Date: 20181231
  Receipt Date: 20190129
  Transmission Date: 20190417
  Serious: No
  Sender: FDA-Public Use
  Company Number: US-ASTRAZENECA-2018SF60780

PATIENT
  Age: 937 Month
  Sex: Male
  Weight: 72.6 kg

DRUGS (1)
  1. BYDUREON BCISE [Suspect]
     Active Substance: EXENATIDE
     Indication: GLYCOSYLATED HAEMOGLOBIN ABNORMAL
     Route: 058
     Dates: start: 201810

REACTIONS (6)
  - Device malfunction [Unknown]
  - Device issue [Unknown]
  - Product use issue [Unknown]
  - Influenza [Recovered/Resolved]
  - Nasopharyngitis [Unknown]
  - Device leakage [Unknown]

NARRATIVE: CASE EVENT DATE: 201810
